FAERS Safety Report 9315959 (Version 2)
Quarter: 2013Q4

REPORT INFORMATION
  Report Type: Spontaneous
  Country: FR (occurrence: FR)
  Receive Date: 20130530
  Receipt Date: 20131125
  Transmission Date: 20140711
  Serious: Yes (Hospitalization)
  Sender: FDA-Public Use
  Company Number: FR-BIOGENIDEC-2013BI047969

PATIENT
  Sex: Female

DRUGS (4)
  1. TYSABRI [Suspect]
     Indication: MULTIPLE SCLEROSIS
     Route: 042
  2. VARNOLINE [Concomitant]
  3. LYRICA [Concomitant]
  4. PROPRANOLOL [Concomitant]

REACTIONS (1)
  - Pulmonary embolism [Not Recovered/Not Resolved]
